FAERS Safety Report 13883878 (Version 1)
Quarter: 2017Q3

REPORT INFORMATION
  Report Type: Spontaneous
  Country: US (occurrence: US)
  Receive Date: 20170815
  Receipt Date: 20170815
  Transmission Date: 20171127
  Serious: Yes (Other)
  Sender: FDA-Public Use
  Company Number: None

PATIENT
  Age: 69 Year
  Sex: Male

DRUGS (3)
  1. LIPITOR [Concomitant]
     Active Substance: ATORVASTATIN CALCIUM
  2. MULTI VITAMINS [Concomitant]
     Active Substance: VITAMINS
  3. OMEGA-3-ETHYL-ESTER [Suspect]
     Active Substance: OMEGA-3-ACID ETHYL ESTERS
     Indication: PRODUCT USED FOR UNKNOWN INDICATION
     Dosage: ?          QUANTITY:120 CAPSULE(S);?
     Route: 048
     Dates: start: 20170806, end: 20170808

REACTIONS (5)
  - Eructation [None]
  - Abdominal pain upper [None]
  - Choking [None]
  - Product odour abnormal [None]
  - Burning sensation [None]

NARRATIVE: CASE EVENT DATE: 20170806
